FAERS Safety Report 11497949 (Version 2)
Quarter: 2016Q2

REPORT INFORMATION
  Report Type: Spontaneous
  Country: FR (occurrence: FR)
  Receive Date: 20150911
  Receipt Date: 20160616
  Transmission Date: 20160815
  Serious: Yes (Hospitalization)
  Sender: FDA-Public Use
  Company Number: FR-ASTRAZENECA-2015SE86875

PATIENT
  Age: 706 Month
  Sex: Female
  Weight: 60 kg

DRUGS (4)
  1. COLCHICINE. [Concomitant]
     Active Substance: COLCHICINE
     Route: 048
  2. INEXIUM [Suspect]
     Active Substance: ESOMEPRAZOLE
     Route: 048
     Dates: end: 20150509
  3. TILDIEM [Concomitant]
     Active Substance: DILTIAZEM HYDROCHLORIDE
     Route: 048
  4. INEXIUM [Suspect]
     Active Substance: ESOMEPRAZOLE
     Route: 048

REACTIONS (9)
  - Iron deficiency anaemia [Recovering/Resolving]
  - Hypomagnesaemia [Recovering/Resolving]
  - Hypocalcaemia [Recovering/Resolving]
  - Gastrointestinal angiodysplasia [Unknown]
  - Muscle contractions involuntary [Recovered/Resolved]
  - Extremity contracture [Unknown]
  - Dysarthria [Unknown]
  - Hypokalaemia [Unknown]
  - Transient ischaemic attack [Recovered/Resolved]

NARRATIVE: CASE EVENT DATE: 2013
